FAERS Safety Report 5023350-7 (Version None)
Quarter: 2006Q2

REPORT INFORMATION
  Report Type: 
  Country: None (occurrence: None)
  Receive Date: 20060612
  Receipt Date: 20060607
  Transmission Date: 20061013
  Serious: Yes (Hospitalization)
  Sender: FDA-Public Use
  Company Number: 2006CG01009

PATIENT
  Age: 36 Year
  Sex: Female

DRUGS (5)
  1. TENORMIN [Suspect]
     Indication: ESSENTIAL HYPERTENSION
     Route: 048
     Dates: end: 20060127
  2. TENORMIN [Suspect]
     Route: 048
     Dates: start: 20060127, end: 20060130
  3. ACTRAPID [Concomitant]
     Indication: GESTATIONAL DIABETES
     Route: 058
     Dates: start: 20050917
  4. INSULATARD NPH HUMAN [Concomitant]
     Indication: GESTATIONAL DIABETES
  5. LEVOTHYROX [Concomitant]
     Indication: HYPOTHYROIDISM
     Route: 048
     Dates: start: 20060202

REACTIONS (2)
  - DRUG EXPOSURE DURING PREGNANCY [None]
  - FOETAL GROWTH RETARDATION [None]
